FAERS Safety Report 10381299 (Version 1)
Quarter: 2014Q3

REPORT INFORMATION
  Report Type: Spontaneous
  Country: JP (occurrence: None)
  Receive Date: 20140811
  Receipt Date: 20140811
  Transmission Date: 20150326
  Serious: Yes (Other)
  Sender: FDA-Public Use
  Company Number: JP-016681

PATIENT
  Sex: Male

DRUGS (2)
  1. BLOOD GLUCOSE LOWERING DRUGS, EXCL. INSULINS [Concomitant]
     Active Substance: UNSPECIFIED INGREDIENT
  2. DEGARELIX (GONAX) [Suspect]
     Active Substance: DEGARELIX
     Indication: PROSTATE CANCER
     Route: 058
     Dates: start: 201312

REACTIONS (3)
  - Pain [None]
  - Blood glucose increased [None]
  - Pyrexia [None]
